FAERS Safety Report 13387577 (Version 1)
Quarter: 2017Q1

REPORT INFORMATION
  Report Type: Spontaneous
  Country: KR (occurrence: KR)
  Receive Date: 20170330
  Receipt Date: 20170330
  Transmission Date: 20170429
  Serious: Yes (Hospitalization, Other)
  Sender: FDA-Public Use
  Company Number: KR-009507513-1703KOR013386

PATIENT
  Age: 42 Year
  Sex: Female
  Weight: 80.7 kg

DRUGS (48)
  1. ENDOXAN [Concomitant]
     Active Substance: CYCLOPHOSPHAMIDE
     Dosage: 915 MG, CYCLE 2
     Route: 042
     Dates: start: 20170206, end: 20170206
  2. EPIRUBICIN HYDROCHLORIDE. [Concomitant]
     Active Substance: EPIRUBICIN HYDROCHLORIDE
     Dosage: 128 MG, CYCLE 2
     Route: 042
     Dates: start: 20170206, end: 20170206
  3. EPIRUBICIN HYDROCHLORIDE. [Concomitant]
     Active Substance: EPIRUBICIN HYDROCHLORIDE
     Dosage: 128 MG, CYCLE 3
     Route: 042
     Dates: start: 20170227, end: 20170227
  4. FLUOROURACIL. [Concomitant]
     Active Substance: FLUOROURACIL
     Dosage: 920 MG, CYCLE 1
     Route: 042
     Dates: start: 20170119, end: 20170119
  5. DEXAMETHASONE. [Concomitant]
     Active Substance: DEXAMETHASONE
     Indication: PROPHYLAXIS OF NAUSEA AND VOMITING
     Dosage: 6 MG, BID
     Route: 048
     Dates: start: 20170116, end: 20170116
  6. DEXAMETHASONE. [Concomitant]
     Active Substance: DEXAMETHASONE
     Dosage: 4 MG, BID
     Route: 048
     Dates: start: 20170117, end: 20170119
  7. SANCUSO [Concomitant]
     Active Substance: GRANISETRON
     Dosage: 34.3 MG, ONCE
     Route: 062
     Dates: start: 20170322, end: 20170322
  8. ALOXI [Concomitant]
     Active Substance: PALONOSETRON HYDROCHLORIDE
     Dosage: 0.25 MG, ONCE
     Route: 042
     Dates: start: 20170227, end: 20170227
  9. NASEA [Concomitant]
     Active Substance: RAMOSETRON HYDROCHLORIDE
     Dosage: 0.1 MG, ONCE
     Route: 048
     Dates: start: 20170327, end: 20170327
  10. CARDIOXANE [Concomitant]
     Active Substance: DEXRAZOXANE HYDROCHLORIDE
     Indication: CARDIOVASCULAR EVENT PROPHYLAXIS
     Dosage: 1000 MG, ONCE
     Route: 042
     Dates: start: 20170116, end: 20170116
  11. ENDOXAN [Concomitant]
     Active Substance: CYCLOPHOSPHAMIDE
     Dosage: 915 MG, CYCLE 3
     Route: 042
     Dates: start: 20170227, end: 20170227
  12. EPIRUBICIN HYDROCHLORIDE. [Concomitant]
     Active Substance: EPIRUBICIN HYDROCHLORIDE
     Indication: CHEMOTHERAPY
     Dosage: 128 MG, CYCLE 1
     Route: 042
     Dates: start: 20170116, end: 20170116
  13. EPIRUBICIN HYDROCHLORIDE. [Concomitant]
     Active Substance: EPIRUBICIN HYDROCHLORIDE
     Dosage: 128 MG, CYCLE 4
     Route: 042
     Dates: start: 20170323, end: 20170323
  14. FLUOROURACIL. [Concomitant]
     Active Substance: FLUOROURACIL
     Dosage: 920 MG, CYCLE 2
     Route: 042
     Dates: start: 20170206, end: 20170206
  15. DEXAMETHASONE. [Concomitant]
     Active Substance: DEXAMETHASONE
     Dosage: 4 MG, BID
     Route: 048
     Dates: start: 20170228, end: 20170302
  16. DEXAMETHASONE. [Concomitant]
     Active Substance: DEXAMETHASONE
     Dosage: 6 MG, BID
     Route: 048
     Dates: start: 20170323, end: 20170323
  17. ALOXI [Concomitant]
     Active Substance: PALONOSETRON HYDROCHLORIDE
     Dosage: 0.25 MG, ONCE
     Route: 042
     Dates: start: 20170206, end: 20170206
  18. NASEA [Concomitant]
     Active Substance: RAMOSETRON HYDROCHLORIDE
     Dosage: 0.1 MG, ONCE
     Route: 048
     Dates: start: 20170303, end: 20170303
  19. STIMOL [Concomitant]
     Indication: PROPHYLAXIS
     Dosage: 1 MG, TID
     Dates: start: 20170102
  20. EMEND (FOSAPREPITANT DIMEGLUMINE) [Suspect]
     Active Substance: FOSAPREPITANT DIMEGLUMINE
     Dosage: 150 MG, ONCE
     Route: 042
     Dates: start: 20170206, end: 20170206
  21. ENDOXAN [Concomitant]
     Active Substance: CYCLOPHOSPHAMIDE
     Dosage: 915 MG, CYCLE 4
     Route: 042
     Dates: start: 20170323, end: 20170323
  22. FLUOROURACIL. [Concomitant]
     Active Substance: FLUOROURACIL
     Dosage: 920 MG, CYCLE 3
     Route: 042
     Dates: start: 20170227, end: 20170227
  23. NASEA [Concomitant]
     Active Substance: RAMOSETRON HYDROCHLORIDE
     Dosage: 0.1 MG, ONCE
     Route: 048
     Dates: start: 20170210, end: 20170210
  24. CARDIOXANE [Concomitant]
     Active Substance: DEXRAZOXANE HYDROCHLORIDE
     Dosage: 1000 MG, ONCE
     Route: 042
     Dates: start: 20170323, end: 20170323
  25. EMEND (FOSAPREPITANT DIMEGLUMINE) [Suspect]
     Active Substance: FOSAPREPITANT DIMEGLUMINE
     Indication: PROPHYLAXIS OF NAUSEA AND VOMITING
     Dosage: 150 MG, ONCE
     Route: 042
     Dates: start: 20170116, end: 20170116
  26. DEXAMETHASONE. [Concomitant]
     Active Substance: DEXAMETHASONE
     Dosage: 4 MG, BID
     Route: 048
     Dates: start: 20170324, end: 20170326
  27. SANCUSO [Concomitant]
     Active Substance: GRANISETRON
     Indication: PROPHYLAXIS OF NAUSEA AND VOMITING
     Dosage: 34.3 MG, ONCE
     Route: 062
     Dates: start: 20170115, end: 20170115
  28. SANCUSO [Concomitant]
     Active Substance: GRANISETRON
     Dosage: 34.3 MG, ONCE
     Route: 062
     Dates: start: 20170205, end: 20170205
  29. ENTELON [Concomitant]
     Indication: PROPHYLAXIS
     Dosage: 150 MG, BID
     Dates: start: 20170102
  30. CARDIOXANE [Concomitant]
     Active Substance: DEXRAZOXANE HYDROCHLORIDE
     Dosage: 1000 MG, ONCE
     Route: 042
     Dates: start: 20170206, end: 20170206
  31. STOGAR [Concomitant]
     Active Substance: LAFUTIDINE
     Indication: PROPHYLAXIS
     Dosage: 10 MG, BID
     Route: 048
     Dates: start: 20170116
  32. EMEND (FOSAPREPITANT DIMEGLUMINE) [Suspect]
     Active Substance: FOSAPREPITANT DIMEGLUMINE
     Dosage: 150 MG, ONCE
     Route: 042
     Dates: start: 20170227, end: 20170227
  33. ENDOXAN [Concomitant]
     Active Substance: CYCLOPHOSPHAMIDE
     Indication: CHEMOTHERAPY
     Dosage: 915 MG, CYCLE 1
     Route: 042
     Dates: start: 20170116, end: 20170116
  34. ENDOXAN [Concomitant]
     Active Substance: CYCLOPHOSPHAMIDE
     Dosage: 915 MG, CYCLE 4
     Route: 042
     Dates: start: 20170323, end: 20170323
  35. FLUOROURACIL. [Concomitant]
     Active Substance: FLUOROURACIL
     Dosage: 920 MG, CYCLE 3
     Route: 042
     Dates: start: 20170302, end: 20170302
  36. FLUOROURACIL. [Concomitant]
     Active Substance: FLUOROURACIL
     Dosage: 920 MG, CYCLE 4
     Route: 042
     Dates: start: 20170323, end: 20170323
  37. DEXAMETHASONE. [Concomitant]
     Active Substance: DEXAMETHASONE
     Dosage: 6 MG, BID
     Route: 048
     Dates: start: 20170206, end: 20170206
  38. DEXAMETHASONE. [Concomitant]
     Active Substance: DEXAMETHASONE
     Dosage: 6 MG, BID
     Route: 048
     Dates: start: 20170227, end: 20170227
  39. NASEA [Concomitant]
     Active Substance: RAMOSETRON HYDROCHLORIDE
     Indication: PROPHYLAXIS OF NAUSEA AND VOMITING
     Dosage: 0.1 MG, ONCE
     Route: 048
     Dates: start: 20170120, end: 20170120
  40. FLUOROURACIL. [Concomitant]
     Active Substance: FLUOROURACIL
     Dosage: 920 MG, CYCLE 2
     Route: 042
     Dates: start: 20170209, end: 20170209
  41. FLUOROURACIL. [Concomitant]
     Active Substance: FLUOROURACIL
     Dosage: 920 MG, CYCLE 4
     Route: 042
     Dates: start: 20170326, end: 20170326
  42. DEXAMETHASONE. [Concomitant]
     Active Substance: DEXAMETHASONE
     Dosage: 4 MG, BID
     Route: 048
     Dates: start: 20170207, end: 20170209
  43. SANCUSO [Concomitant]
     Active Substance: GRANISETRON
     Dosage: 34.3 MG, ONCE
     Route: 062
     Dates: start: 20170226, end: 20170226
  44. ALOXI [Concomitant]
     Active Substance: PALONOSETRON HYDROCHLORIDE
     Dosage: 0.25 MG, ONCE
     Route: 042
     Dates: start: 20170323, end: 20170323
  45. CARDIOXANE [Concomitant]
     Active Substance: DEXRAZOXANE HYDROCHLORIDE
     Dosage: 1000 MG, ONCE
     Route: 042
     Dates: start: 20170227, end: 20170227
  46. EMEND (FOSAPREPITANT DIMEGLUMINE) [Suspect]
     Active Substance: FOSAPREPITANT DIMEGLUMINE
     Dosage: 150 MG, ONCE
     Route: 042
     Dates: start: 20170323, end: 20170323
  47. FLUOROURACIL. [Concomitant]
     Active Substance: FLUOROURACIL
     Indication: CHEMOTHERAPY
     Dosage: 920 MG, CYCLE 1
     Route: 042
     Dates: start: 20170116, end: 20170116
  48. ALOXI [Concomitant]
     Active Substance: PALONOSETRON HYDROCHLORIDE
     Indication: PROPHYLAXIS OF NAUSEA AND VOMITING
     Dosage: 0.25 MG, ONCE
     Route: 042
     Dates: start: 20170116, end: 20170116

REACTIONS (7)
  - Neutropenia [Recovered/Resolved]
  - Neutropenia [Recovered/Resolved]
  - Dyspnoea [Recovered/Resolved]
  - Feeling hot [Recovered/Resolved]
  - Procedural pain [Recovered/Resolved]
  - Procedural pain [Recovered/Resolved]
  - Neutropenia [Recovered/Resolved]

NARRATIVE: CASE EVENT DATE: 20170127
